FAERS Safety Report 24422301 (Version 1)
Quarter: 2024Q4

REPORT INFORMATION
  Report Type: Spontaneous
  Country: US (occurrence: US)
  Receive Date: 20241010
  Receipt Date: 20241010
  Transmission Date: 20250115
  Serious: Yes (Other)
  Sender: Long Grove Pharmaceuticals
  Company Number: US-Long Grove-000079

PATIENT
  Age: 30 Year
  Sex: Female

DRUGS (1)
  1. TRIAMCINOLONE ACETONIDE [Suspect]
     Active Substance: TRIAMCINOLONE ACETONIDE
     Indication: Disorder of orbit
     Dosage: 2ML OF 40MG/ML WITH A 25-GAUGE NEEDLE ON EACH SIDE
     Route: 026

REACTIONS (1)
  - Retinal artery occlusion [Unknown]
